FAERS Safety Report 8113079-0 (Version None)
Quarter: 2012Q1

REPORT INFORMATION
  Report Type: 
  Country: None (occurrence: None)
  Receive Date: 20120203
  Receipt Date: 20120127
  Transmission Date: 20120608
  Serious: Yes (Hospitalization)
  Sender: FDA-Public Use
  Company Number: IE-GLAXOSMITHKLINE-B0778214A

PATIENT
  Sex: Female
  Weight: 55 kg

DRUGS (8)
  1. CARBOPLATIN [Suspect]
     Indication: BREAST CANCER
     Dosage: 750MG CYCLIC
     Route: 042
     Dates: start: 20110922
  2. TRASTUZUMAB [Suspect]
     Indication: BREAST CANCER
     Dosage: 357MG CYCLIC
     Route: 042
     Dates: start: 20110922
  3. OMEPRAZOLE [Concomitant]
     Dosage: 40MG PER DAY
     Route: 048
     Dates: start: 20111104
  4. CYCLIZINE [Concomitant]
     Dosage: 150MG PER DAY
     Route: 048
     Dates: start: 20110929
  5. AMITRIPTYLINE HCL [Concomitant]
     Dosage: 10MG PER DAY
     Route: 048
     Dates: start: 20111104
  6. DOCETAXEL [Suspect]
     Indication: BREAST CANCER
     Dosage: 120MG CYCLIC
     Route: 042
     Dates: start: 20110922
  7. IMODIUM [Concomitant]
     Dosage: 10MG PER DAY
     Route: 048
     Dates: start: 20110925
  8. LAPATINIB [Suspect]
     Indication: BREAST CANCER
     Dosage: 1000MG PER DAY
     Route: 048
     Dates: start: 20110922

REACTIONS (4)
  - DEHYDRATION [None]
  - DIARRHOEA [None]
  - HYPOKALAEMIA [None]
  - HYPOMAGNESAEMIA [None]
